FAERS Safety Report 10052274 (Version 2)
Quarter: 2014Q2

REPORT INFORMATION
  Report Type: Spontaneous
  Country: AU (occurrence: AU)
  Receive Date: 20140402
  Receipt Date: 20140414
  Transmission Date: 20141212
  Serious: Yes (Other)
  Sender: FDA-Public Use
  Company Number: AU-JNJFOC-20140313884

PATIENT
  Age: 25 Year
  Sex: Male
  Weight: 50 kg

DRUGS (5)
  1. REMICADE [Suspect]
     Indication: HIDRADENITIS
     Route: 042
     Dates: start: 20131106
  2. REMICADE [Suspect]
     Indication: HIDRADENITIS
     Route: 042
     Dates: start: 20140311, end: 20140311
  3. REMICADE [Suspect]
     Indication: HIDRADENITIS
     Route: 042
     Dates: start: 2012
  4. CARBAMAZEPINE [Concomitant]
     Indication: GENERALISED TONIC-CLONIC SEIZURE
     Route: 065
  5. SODIUM VALPROATE [Concomitant]
     Indication: GENERALISED TONIC-CLONIC SEIZURE
     Route: 065

REACTIONS (8)
  - Dyspnoea [Recovered/Resolved]
  - Feeling of body temperature change [Recovered/Resolved]
  - Infusion related reaction [Recovered/Resolved]
  - Flushing [Recovered/Resolved]
  - Chest pain [Recovered/Resolved]
  - Chills [Recovered/Resolved]
  - Feeling abnormal [Recovered/Resolved]
  - Off label use [Unknown]
